FAERS Safety Report 9752581 (Version 3)
Quarter: 2014Q1

REPORT INFORMATION
  Report Type: Spontaneous
  Country: FR (occurrence: None)
  Receive Date: 20131211
  Receipt Date: 20140205
  Transmission Date: 20141002
  Serious: Yes (Life-Threatening)
  Sender: FDA-Public Use
  Company Number: AUR-APL-2013-10260

PATIENT
  Age: 83 Year
  Sex: Female

DRUGS (8)
  1. BISOPROLOL [Suspect]
     Indication: HYPERTENSION
     Route: 048
     Dates: end: 20130730
  2. TAHOR (ATORVASTATIN CALCIUM) [Suspect]
     Indication: HYPERCHOLESTEROLAEMIA
     Route: 048
     Dates: start: 20130412, end: 20130730
  3. BIPRETERAX [Suspect]
     Indication: HYPERTENSION
     Route: 048
     Dates: start: 20130525, end: 20130730
  4. FLODIL LP [Suspect]
     Indication: HYPERTENSION
     Route: 048
     Dates: start: 20130525, end: 20130730
  5. PLAVIX [Suspect]
     Indication: PRODUCT USED FOR UNKNOWN INDICATION
     Route: 048
     Dates: start: 20130412, end: 20130730
  6. ADANCOR [Suspect]
     Indication: ANGINA PECTORIS
     Dosage: 20 MG (10 MG, 2 IN 1 D)
     Route: 048
     Dates: start: 20130412, end: 20130730
  7. KARDEGIC (ACETYLSALICYLATE LYSINE) [Concomitant]
  8. LEVOTHYROX (LEVOTHYROXINE SODIUM) INFUSION [Concomitant]

REACTIONS (7)
  - Pruritus [None]
  - Jaundice cholestatic [None]
  - Decreased appetite [None]
  - Weight decreased [None]
  - Abdominal pain [None]
  - Hepatic fibrosis [None]
  - Hepatotoxicity [None]
